FAERS Safety Report 21122380 (Version 1)
Quarter: 2022Q3

REPORT INFORMATION
  Report Type: Spontaneous
  Country: US (occurrence: US)
  Receive Date: 20220723
  Receipt Date: 20220723
  Transmission Date: 20221027
  Serious: Yes (Other)
  Sender: FDA-Public Use
  Company Number: US-drreddys-LIT/USA/22/0152490

PATIENT
  Age: 36 Year
  Sex: Male

DRUGS (13)
  1. LORAZEPAM [Suspect]
     Active Substance: LORAZEPAM
     Indication: Schizoaffective disorder bipolar type
  2. LORAZEPAM [Suspect]
     Active Substance: LORAZEPAM
     Dosage: DOSE WAS REDUCED AFTER 15 DAYS ON ISONIAZID THERAPY WITH THE GOAL OF TAPERING AND DISCONTINUATION
  3. LORAZEPAM [Suspect]
     Active Substance: LORAZEPAM
     Dosage: DOSE INCREASED
  4. LORAZEPAM [Suspect]
     Active Substance: LORAZEPAM
     Dosage: LORAZEPAM DOSE WAS ALSO INCREASED BACK TO
  5. LORAZEPAM [Suspect]
     Active Substance: LORAZEPAM
     Dosage: A FEW MONTHS LATER, ANOTHER ATTEMPT TO TAPER LORAZEPAM WAS MADE
  6. PYRIDOXINE HYDROCHLORIDE [Suspect]
     Active Substance: PYRIDOXINE HYDROCHLORIDE
     Indication: Latent tuberculosis
  7. ARIPIPRAZOLE [Interacting]
     Active Substance: ARIPIPRAZOLE
     Indication: Schizoaffective disorder bipolar type
  8. ARIPIPRAZOLE [Interacting]
     Active Substance: ARIPIPRAZOLE
     Indication: Latent tuberculosis
     Dosage: DOSE WAS REDUCED
  9. CLOZAPINE [Suspect]
     Active Substance: CLOZAPINE
     Indication: Schizoaffective disorder bipolar type
  10. CLOZAPINE [Suspect]
     Active Substance: CLOZAPINE
     Dosage: ON DAY 17 DOSE WAS INCREASED.
  11. VALPROIC ACID [Suspect]
     Active Substance: VALPROIC ACID
     Indication: Schizoaffective disorder bipolar type
  12. ISONIAZID [Interacting]
     Active Substance: ISONIAZID
     Indication: Schizoaffective disorder bipolar type
  13. ISONIAZID [Interacting]
     Active Substance: ISONIAZID
     Indication: Latent tuberculosis
     Dosage: ON DAY 17 DOSE WAS INCREASED.

REACTIONS (5)
  - Rebound effect [Unknown]
  - Drug interaction [Unknown]
  - Anxiety [Unknown]
  - Psychotic disorder [Unknown]
  - Agitation [Unknown]
